FAERS Safety Report 6807314-6 (Version None)
Quarter: 2010Q2

REPORT INFORMATION
  Report Type: 
  Country: None (occurrence: None)
  Receive Date: 20100629
  Receipt Date: 20080826
  Transmission Date: 20101027
  Serious: No
  Sender: FDA-Public Use
  Company Number: US-PFIZER INC-2008062298

PATIENT
  Sex: Male
  Weight: 79.38 kg

DRUGS (4)
  1. VIAGRA [Suspect]
     Indication: ERECTILE DYSFUNCTION
     Route: 048
     Dates: start: 20080601
  2. AMBIEN [Interacting]
     Indication: INSOMNIA
     Route: 048
     Dates: start: 20080601
  3. LIPITOR [Concomitant]
  4. ZETIA [Concomitant]

REACTIONS (2)
  - DRUG INTERACTION [None]
  - LOSS OF CONSCIOUSNESS [None]
